FAERS Safety Report 12881312 (Version 1)
Quarter: 2016Q4

REPORT INFORMATION
  Report Type: Spontaneous
  Country: US (occurrence: US)
  Receive Date: 20161025
  Receipt Date: 20161025
  Transmission Date: 20170207
  Serious: No
  Sender: FDA-Public Use
  Company Number: US-JNJFOC-20161004361

PATIENT
  Age: 53 Year
  Sex: Female
  Weight: 86.64 kg

DRUGS (3)
  1. SEROQUEL [Concomitant]
     Active Substance: QUETIAPINE FUMARATE
     Indication: SCHIZOPHRENIA
     Route: 048
  2. RISPERDAL CONSTA [Suspect]
     Active Substance: RISPERIDONE
     Indication: SCHIZOPHRENIA
     Route: 030
     Dates: start: 201306
  3. RISPERDAL [Concomitant]
     Active Substance: RISPERIDONE
     Indication: SCHIZOPHRENIA
     Route: 048

REACTIONS (1)
  - Drug dose omission [Unknown]

NARRATIVE: CASE EVENT DATE: 20161004
